FAERS Safety Report 24318906 (Version 1)
Quarter: 2024Q3

REPORT INFORMATION
  Report Type: Spontaneous
  Country: US (occurrence: US)
  Receive Date: 20240913
  Receipt Date: 20240913
  Transmission Date: 20241017
  Serious: No
  Sender: MERCK
  Company Number: US-009507513-2409USA002081

PATIENT
  Age: 79 Year
  Sex: Male

DRUGS (11)
  1. CUBICIN [Suspect]
     Active Substance: DAPTOMYCIN
     Indication: Staphylococcal bacteraemia
     Dosage: UNK
     Route: 051
  2. CUBICIN [Suspect]
     Active Substance: DAPTOMYCIN
     Indication: Prosthetic valve endocarditis
  3. AMIODARONE [Concomitant]
     Active Substance: AMIODARONE
  4. AMLODIPINE [Concomitant]
     Active Substance: AMLODIPINE BESYLATE
  5. LEVOTHYROXINE [Concomitant]
     Active Substance: LEVOTHYROXINE\LEVOTHYROXINE SODIUM
  6. TAMSULOSIN [Concomitant]
     Active Substance: TAMSULOSIN
  7. WARFARIN [Concomitant]
     Active Substance: WARFARIN
  8. SULFAMETHOXAZOLE\TRIMETHOPRIM [Concomitant]
     Active Substance: SULFAMETHOXAZOLE\TRIMETHOPRIM
     Dosage: 160-800 MG TWICE DAILY
  9. VANCOMYCIN [Concomitant]
     Active Substance: VANCOMYCIN
     Route: 051
  10. CEFTAROLINE [Concomitant]
     Active Substance: CEFTAROLINE
     Route: 051
  11. GENTAMICIN [Concomitant]
     Active Substance: GENTAMICIN
     Route: 051

REACTIONS (1)
  - Product use in unapproved indication [Unknown]
